FAERS Safety Report 16239966 (Version 2)
Quarter: 2019Q2

REPORT INFORMATION
  Report Type: Spontaneous
  Country: US (occurrence: US)
  Receive Date: 20190425
  Receipt Date: 20190521
  Transmission Date: 20190711
  Serious: No
  Sender: FDA-Public Use
  Company Number: US-ASTRAZENECA-2019SE49880

PATIENT
  Age: 22433 Day
  Sex: Female
  Weight: 135.2 kg

DRUGS (2)
  1. TUDORZA PRESSAIR [Suspect]
     Active Substance: ACLIDINIUM BROMIDE
     Indication: ASTHMA
     Route: 055
     Dates: start: 20190310
  2. OXYGEN. [Concomitant]
     Active Substance: OXYGEN
     Dosage: 2.0L/MIN CONTINUOUSLY
     Route: 055
     Dates: start: 2017

REACTIONS (6)
  - Product dose omission [Not Recovered/Not Resolved]
  - Device issue [Unknown]
  - Dysphonia [Not Recovered/Not Resolved]
  - Oropharyngeal pain [Not Recovered/Not Resolved]
  - Off label use [Unknown]
  - Product use in unapproved indication [Unknown]

NARRATIVE: CASE EVENT DATE: 20190310
